FAERS Safety Report 20181680 (Version 1)
Quarter: 2021Q4

REPORT INFORMATION
  Report Type: Spontaneous
  Country: US (occurrence: None)
  Receive Date: 20211214
  Receipt Date: 20211214
  Transmission Date: 20220303
  Serious: Yes (Other)
  Sender: FDA-Public Use
  Company Number: US-ROCHE-2978425

PATIENT
  Age: 65 Year
  Sex: Male
  Weight: 74.7 kg

DRUGS (2)
  1. BEVACIZUMAB [Suspect]
     Active Substance: BEVACIZUMAB
     Indication: Product used for unknown indication
     Dosage: 10MG/KG EVERY 2 WKS, IV
     Route: 042
  2. ERLOTINIB [Suspect]
     Active Substance: ERLOTINIB
     Indication: Product used for unknown indication
     Dosage: 150 MG DAILY, PO
     Route: 048

REACTIONS (3)
  - Myocardial infarction [Unknown]
  - Catheterisation cardiac [Unknown]
  - Stenosis [Unknown]
